FAERS Safety Report 7777296-1 (Version None)
Quarter: 2011Q3

REPORT INFORMATION
  Report Type: 
  Country: None (occurrence: None)
  Receive Date: 20110926
  Receipt Date: 20110921
  Transmission Date: 20111222
  Serious: No
  Sender: FDA-Public Use
  Company Number: PHEH2011US04750

PATIENT
  Age: 52 Year
  Sex: Female

DRUGS (2)
  1. TASIGNA [Suspect]
     Dosage: 400 MG, BID
     Route: 048
  2. LEXAPRO [Concomitant]

REACTIONS (3)
  - ALOPECIA [None]
  - MALAISE [None]
  - FATIGUE [None]
